FAERS Safety Report 5536322-0 (Version None)
Quarter: 2007Q4

REPORT INFORMATION
  Report Type: 
  Country: None (occurrence: None)
  Receive Date: 20071206
  Receipt Date: 20071127
  Transmission Date: 20080405
  Serious: Yes (Hospitalization, Other)
  Sender: FDA-Public Use
  Company Number: JP-PFIZER INC-2007092081

PATIENT
  Sex: Male

DRUGS (4)
  1. SULPERAZON [Suspect]
     Indication: URINARY TRACT INFECTION
     Route: 042
     Dates: start: 20071018, end: 20071022
  2. SOLUTIONS FOR PARENTERAL NUTRITION [Concomitant]
  3. SODIUM CHLORIDE [Concomitant]
  4. HUMULIN 70/30 [Concomitant]
     Route: 058

REACTIONS (1)
  - PANCYTOPENIA [None]
